FAERS Safety Report 19154204 (Version 4)
Quarter: 2022Q1

REPORT INFORMATION
  Report Type: Report from Study
  Country: KR (occurrence: None)
  Receive Date: 20210419
  Receipt Date: 20220318
  Transmission Date: 20220423
  Serious: Yes (Death, Hospitalization)
  Sender: FDA-Public Use
  Company Number: KR-EISAI MEDICAL RESEARCH-EC-2021-091191

PATIENT
  Age: 65 Year
  Sex: Male

DRUGS (7)
  1. LENVIMA [Suspect]
     Active Substance: LENVATINIB
     Indication: Hepatocellular carcinoma
     Route: 048
     Dates: start: 20200916, end: 20210317
  2. COZAAR [Concomitant]
     Active Substance: LOSARTAN POTASSIUM
     Indication: Hypertension
     Route: 048
     Dates: start: 20200619, end: 20210305
  3. VIREAD [Concomitant]
     Active Substance: TENOFOVIR DISOPROXIL FUMARATE
     Indication: Chronic hepatitis B
     Route: 048
     Dates: start: 20190211
  4. ALDACTONE [Concomitant]
     Active Substance: SPIRONOLACTONE
     Indication: Prophylaxis
     Route: 048
     Dates: start: 20200715, end: 20210305
  5. REACTAMINE SC [Concomitant]
     Indication: Prophylaxis
     Route: 048
     Dates: start: 20200916, end: 20210305
  6. AMINO ACIDS, SOURCE UNSPECIFIED [Concomitant]
     Active Substance: AMINO ACIDS, SOURCE UNSPECIFIED
     Indication: Prophylaxis
     Route: 048
     Dates: start: 20200916, end: 20210305
  7. MEGACE [Concomitant]
     Active Substance: MEGESTROL ACETATE
     Indication: Decreased appetite
     Route: 048
     Dates: start: 20201104, end: 20210305

REACTIONS (1)
  - Hepatorenal syndrome [Fatal]

NARRATIVE: CASE EVENT DATE: 20210305
